FAERS Safety Report 22109946 (Version 1)
Quarter: 2023Q1

REPORT INFORMATION
  Report Type: Spontaneous
  Country: US (occurrence: US)
  Receive Date: 20230317
  Receipt Date: 20230317
  Transmission Date: 20230418
  Serious: Yes (Other)
  Sender: FDA-Public Use
  Company Number: US-JNJFOC-20230319981

PATIENT
  Sex: Female
  Weight: 91.254 kg

DRUGS (3)
  1. STELARA [Suspect]
     Active Substance: USTEKINUMAB
     Indication: Psoriasis
     Route: 058
     Dates: start: 201703, end: 20220324
  2. PRENATAL VITAMINS [ASCORBIC ACID;CALCIUM PANTOTHENATE;CYANOCOBALAMIN;E [Concomitant]
     Indication: Pregnancy
     Route: 048
  3. CYTOTEC [Concomitant]
     Active Substance: MISOPROSTOL
     Indication: Pregnancy

REACTIONS (3)
  - Abnormal cord insertion [Recovered/Resolved]
  - Gestational hypertension [Recovered/Resolved]
  - Exposure during pregnancy [Recovered/Resolved]

NARRATIVE: CASE EVENT DATE: 20220824
